FAERS Safety Report 20643562 (Version 2)
Quarter: 2022Q2

REPORT INFORMATION
  Report Type: Spontaneous
  Country: US (occurrence: US)
  Receive Date: 20220328
  Receipt Date: 20220411
  Transmission Date: 20220721
  Serious: Yes (Other)
  Sender: FDA-Public Use
  Company Number: US-PFIZER INC-202200426644

PATIENT
  Age: 64 Year
  Sex: Female
  Weight: 70.757 kg

DRUGS (2)
  1. ATORVASTATIN CALCIUM [Suspect]
     Active Substance: ATORVASTATIN CALCIUM
     Indication: Blood cholesterol
     Dosage: UNK, 1X/DAY
  2. ATORVASTATIN CALCIUM [Suspect]
     Active Substance: ATORVASTATIN CALCIUM
     Indication: Blood triglycerides

REACTIONS (8)
  - Brain injury [Unknown]
  - Swollen tongue [Unknown]
  - Throat tightness [Unknown]
  - Pharyngeal swelling [Unknown]
  - Reaction to colouring [Unknown]
  - Memory impairment [Unknown]
  - Urticaria [Unknown]
  - Diarrhoea [Unknown]
